FAERS Safety Report 12663957 (Version 1)
Quarter: 2016Q3

REPORT INFORMATION
  Report Type: Spontaneous
  Country: US (occurrence: None)
  Receive Date: 20160817
  Receipt Date: 20160817
  Transmission Date: 20161109
  Serious: Yes (Hospitalization)
  Sender: FDA-Public Use
  Company Number: None

PATIENT
  Age: 7 Year
  Sex: Male
  Weight: 10.7 kg

DRUGS (3)
  1. BLEOMYCIN [Suspect]
     Active Substance: BLEOMYCIN SULFATE
     Dates: end: 20100311
  2. ETOPOSIDE (VP-16) [Suspect]
     Active Substance: ETOPOSIDE
     Dates: end: 20100313
  3. CISPLATIN. [Suspect]
     Active Substance: CISPLATIN
     Dates: end: 20100313

REACTIONS (7)
  - Mediastinal mass [None]
  - Fatigue [None]
  - Dyspnoea [None]
  - Contusion [None]
  - Pancytopenia [None]
  - Pleural effusion [None]
  - Leukaemia [None]

NARRATIVE: CASE EVENT DATE: 20160607
